FAERS Safety Report 19059187 (Version 1)
Quarter: 2021Q1

REPORT INFORMATION
  Report Type: Spontaneous
  Country: AU (occurrence: AU)
  Receive Date: 20210325
  Receipt Date: 20210325
  Transmission Date: 20210420
  Serious: Yes (Other)
  Sender: FDA-Public Use
  Company Number: AU-PFIZER INC-2021287311

PATIENT
  Age: 70 Year
  Sex: Male

DRUGS (2)
  1. XELJANZ [Suspect]
     Active Substance: TOFACITINIB CITRATE
     Indication: RHEUMATOID ARTHRITIS
     Dosage: 5 MG, 2X/DAY
     Dates: start: 20181205
  2. PANADOL [Suspect]
     Active Substance: ACETAMINOPHEN
     Dosage: UNK, DAILY

REACTIONS (1)
  - Hepatic cirrhosis [Not Recovered/Not Resolved]
